FAERS Safety Report 21411108 (Version 2)
Quarter: 2022Q4

REPORT INFORMATION
  Report Type: Spontaneous
  Country: NL (occurrence: NL)
  Receive Date: 20221005
  Receipt Date: 20221010
  Transmission Date: 20230113
  Serious: Yes (Death)
  Sender: FDA-Public Use
  Company Number: None

PATIENT
  Sex: Female
  Weight: 75 kg

DRUGS (2)
  1. ETONOGESTREL [Suspect]
     Active Substance: ETONOGESTREL
     Indication: Contraception
     Dosage: SINGLE ADMINISTRATION
     Dates: start: 20220831
  2. IBUPROFEN [Concomitant]
     Active Substance: IBUPROFEN
     Dosage: TABLET 400 MG

REACTIONS (2)
  - Headache [Unknown]
  - Completed suicide [Fatal]
